FAERS Safety Report 17096907 (Version 1)
Quarter: 2019Q4

REPORT INFORMATION
  Report Type: Spontaneous
  Country: CA (occurrence: CA)
  Receive Date: 20191202
  Receipt Date: 20191202
  Transmission Date: 20200122
  Serious: Yes (Hospitalization, Other)
  Sender: FDA-Public Use
  Company Number: CA-TEVA-2019-CA-1144138

PATIENT
  Age: 70 Year
  Sex: Male

DRUGS (5)
  1. METHOTREXATE. [Suspect]
     Active Substance: METHOTREXATE
     Indication: RHEUMATOID ARTHRITIS
     Route: 058
  2. FOLIC ACID. [Concomitant]
     Active Substance: FOLIC ACID
  3. PANTOPRAZOLE MAGNESIUM [Concomitant]
     Active Substance: PANTOPRAZOLE MAGNESIUM
     Route: 065
  4. DICLOFENAC [Concomitant]
     Active Substance: DICLOFENAC
     Dosage: 50 MILLIGRAM DAILY;
  5. CALCIUM [Concomitant]
     Active Substance: CALCIUM
     Route: 065

REACTIONS (25)
  - Dizziness [Not Recovered/Not Resolved]
  - Drug ineffective [Not Recovered/Not Resolved]
  - Productive cough [Not Recovered/Not Resolved]
  - Chills [Not Recovered/Not Resolved]
  - Fall [Not Recovered/Not Resolved]
  - Influenza [Not Recovered/Not Resolved]
  - Joint injury [Not Recovered/Not Resolved]
  - Nasopharyngitis [Not Recovered/Not Resolved]
  - Sensitivity to weather change [Not Recovered/Not Resolved]
  - Lower limb fracture [Not Recovered/Not Resolved]
  - Limb injury [Not Recovered/Not Resolved]
  - Myalgia [Not Recovered/Not Resolved]
  - Muscular weakness [Not Recovered/Not Resolved]
  - Skin ulcer [Not Recovered/Not Resolved]
  - Tendon disorder [Not Recovered/Not Resolved]
  - Upper limb fracture [Not Recovered/Not Resolved]
  - Arthralgia [Not Recovered/Not Resolved]
  - Hyperhidrosis [Not Recovered/Not Resolved]
  - Prostate cancer [Not Recovered/Not Resolved]
  - Spinal fracture [Not Recovered/Not Resolved]
  - Impaired work ability [Not Recovered/Not Resolved]
  - Insomnia [Not Recovered/Not Resolved]
  - Musculoskeletal stiffness [Not Recovered/Not Resolved]
  - Rhinorrhoea [Not Recovered/Not Resolved]
  - Somnolence [Not Recovered/Not Resolved]
